FAERS Safety Report 4300854-3 (Version None)
Quarter: 2004Q1

REPORT INFORMATION
  Report Type: 
  Country: None (occurrence: None)
  Receive Date: 20040220
  Receipt Date: 20031014
  Transmission Date: 20041129
  Serious: Yes (Other)
  Sender: FDA-Public Use
  Company Number: WAES 0310GBR00147

PATIENT
  Age: 28 Year
  Sex: Male

DRUGS (2)
  1. PROSCAR [Suspect]
     Indication: HYPOTRICHOSIS
     Route: 048
     Dates: start: 20021001, end: 20021101
  2. PROSCAR [Suspect]
     Route: 048
     Dates: start: 20020101, end: 20021201

REACTIONS (21)
  - ACNE [None]
  - ALOPECIA [None]
  - ANXIETY [None]
  - ASTHENIA [None]
  - AUTOIMMUNE DISORDER [None]
  - BURNING SENSATION [None]
  - DEPRESSION [None]
  - DERMATITIS EXFOLIATIVE [None]
  - FURUNCLE [None]
  - HYPOTRICHOSIS [None]
  - INSOMNIA [None]
  - MADAROSIS [None]
  - MUSCLE ATROPHY [None]
  - PANIC ATTACK [None]
  - PARAESTHESIA [None]
  - RECURRING SKIN BOILS [None]
  - SEBORRHOEA [None]
  - SKIN BURNING SENSATION [None]
  - STRESS SYMPTOMS [None]
  - SUICIDAL IDEATION [None]
  - WEIGHT DECREASED [None]
